FAERS Safety Report 18073875 (Version 1)
Quarter: 2020Q3

REPORT INFORMATION
  Report Type: Spontaneous
  Country: US (occurrence: US)
  Receive Date: 20200727
  Receipt Date: 20200727
  Transmission Date: 20201103
  Serious: Yes (Hospitalization)
  Sender: FDA-Public Use
  Company Number: US-ELI_LILLY_AND_COMPANY-US202007007480

PATIENT
  Age: 62 Year
  Sex: Female

DRUGS (9)
  1. HUMULIN R U?500 [Suspect]
     Active Substance: INSULIN HUMAN
     Indication: PRODUCT USED FOR UNKNOWN INDICATION
     Dosage: 60 U, OTHER (BEFORE MEALS)
     Route: 058
     Dates: start: 2016
  2. HUMULIN R U?500 [Suspect]
     Active Substance: INSULIN HUMAN
     Dosage: 2 U, PRN (EVERY TWO HOURS ON A SLIDING SCALE)
     Route: 058
     Dates: start: 2016
  3. HUMULIN R U?500 [Suspect]
     Active Substance: INSULIN HUMAN
     Dosage: 60 U, OTHER (BEFORE MEALS)
     Route: 058
  4. HUMULIN R U?500 [Suspect]
     Active Substance: INSULIN HUMAN
     Dosage: 2 U, PRN (EVERY TWO HOURS ON A SLIDING SCALE)
     Route: 058
     Dates: start: 2016
  5. HUMULIN R U?500 [Suspect]
     Active Substance: INSULIN HUMAN
     Dosage: 2 U, PRN (EVERY TWO HOURS ON A SLIDING SCALE)
     Route: 058
  6. HUMULIN R U?500 [Suspect]
     Active Substance: INSULIN HUMAN
     Indication: PRODUCT USED FOR UNKNOWN INDICATION
     Dosage: 60 U, OTHER (BEFORE MEALS)
     Route: 058
     Dates: start: 2016
  7. HUMULIN R U?500 [Suspect]
     Active Substance: INSULIN HUMAN
     Dosage: 2 U, PRN (EVERY TWO HOURS ON A SLIDING SCALE)
     Route: 058
  8. TRESIBA [Concomitant]
     Active Substance: INSULIN DEGLUDEC
     Indication: PRODUCT USED FOR UNKNOWN INDICATION
  9. HUMULIN R U?500 [Suspect]
     Active Substance: INSULIN HUMAN
     Dosage: 60 U, OTHER (BEFORE MEALS)
     Route: 058

REACTIONS (4)
  - Blood glucose increased [Recovering/Resolving]
  - Product dose omission issue [Unknown]
  - Pneumonia [Recovering/Resolving]
  - Product dose omission issue [Unknown]

NARRATIVE: CASE EVENT DATE: 20200715
